FAERS Safety Report 7136133-9 (Version None)
Quarter: 2010Q4

REPORT INFORMATION
  Report Type: 
  Country: None (occurrence: None)
  Receive Date: 20101205
  Receipt Date: 20101124
  Transmission Date: 20110411
  Serious: Yes (Other)
  Sender: FDA-Public Use
  Company Number: BR-JNJFOC-20100904499

PATIENT
  Age: 63 Year
  Sex: Male
  Weight: 104 kg

DRUGS (6)
  1. STELARA [Suspect]
     Indication: PSORIASIS
     Route: 058
  2. STELARA [Suspect]
     Route: 058
  3. DIOSMIN [Concomitant]
  4. METFORMIN [Concomitant]
  5. CAPTOPRIL [Concomitant]
  6. ASPIRIN [Concomitant]

REACTIONS (4)
  - CYST [None]
  - FATIGUE [None]
  - UPPER RESPIRATORY TRACT INFECTION [None]
  - WEIGHT DECREASED [None]
